FAERS Safety Report 16485485 (Version 1)
Quarter: 2019Q2

REPORT INFORMATION
  Report Type: Spontaneous
  Country: SE (occurrence: SE)
  Receive Date: 20190627
  Receipt Date: 20190627
  Transmission Date: 20190711
  Serious: Yes (Hospitalization)
  Sender: FDA-Public Use
  Company Number: SE-TEVA-2019-SE-1069936

PATIENT
  Age: 33 Year
  Sex: Female

DRUGS (2)
  1. QUETIAPINE. [Suspect]
     Active Substance: QUETIAPINE
     Dosage: 300 MILLIGRAM DEPOT
     Route: 048
     Dates: start: 20190301, end: 20190301
  2. LERGIGAN (PROMETHAZINE HYDROCHLORIDE) [Suspect]
     Active Substance: PROMETHAZINE HYDROCHLORIDE
     Dosage: 325 MILLIGRAM 13 X 25 MG
     Route: 048
     Dates: start: 20190301, end: 20190301

REACTIONS (5)
  - Intentional overdose [Unknown]
  - Anxiety [Unknown]
  - Tachycardia [Unknown]
  - Intentional self-injury [Unknown]
  - Tremor [Unknown]

NARRATIVE: CASE EVENT DATE: 20190301
